FAERS Safety Report 6277683-7 (Version None)
Quarter: 2009Q3

REPORT INFORMATION
  Report Type: 
  Country: None (occurrence: None)
  Receive Date: 20090722
  Receipt Date: 20090708
  Transmission Date: 20100115
  Serious: Yes (Congenital Anomaly)
  Sender: FDA-Public Use
  Company Number: A0680619A

PATIENT
  Sex: Female

DRUGS (3)
  1. PAXIL CR [Suspect]
     Indication: DEPRESSION
     Dosage: 12.5MG PER DAY
     Dates: start: 20040801, end: 20041001
  2. PAXIL [Suspect]
     Indication: DRUG USE FOR UNKNOWN INDICATION
  3. VITAMIN TAB [Concomitant]

REACTIONS (3)
  - CONGENITAL ANOMALY [None]
  - DRUG EXPOSURE DURING PREGNANCY [None]
  - PATENT DUCTUS ARTERIOSUS [None]
